FAERS Safety Report 16213535 (Version 1)
Quarter: 2019Q2

REPORT INFORMATION
  Report Type: Spontaneous
  Country: US (occurrence: US)
  Receive Date: 20190418
  Receipt Date: 20190418
  Transmission Date: 20190711
  Serious: Yes (Hospitalization)
  Sender: FDA-Public Use
  Company Number: US-TEVA-2019-US-1038474

PATIENT
  Age: 59 Year
  Sex: Male

DRUGS (3)
  1. MIDOSTAURIN [Suspect]
     Active Substance: MIDOSTAURIN
     Indication: ACUTE MYELOID LEUKAEMIA
     Dosage: SCHEDULED ON DAYS 8-21.  NO.OF SEPARATE DOSAGES: 1, NUMBER OF UNITS IN THE INTERVAL : 5
     Route: 048
  2. DAUNORUBICIN [Concomitant]
     Active Substance: DAUNORUBICIN
     Indication: ACUTE MYELOID LEUKAEMIA
     Dosage: CONTINUOUS INFUSION ON DAYS 1-3. NO.OF SEPARATE DOSAGES: 1
     Route: 065
  3. CYTARABINE. [Suspect]
     Active Substance: CYTARABINE
     Indication: ACUTE MYELOID LEUKAEMIA
     Dosage: CONTINUOUS INFUSION ON DAYS 1-7. NO.OF SEPARATE DOSAGES: 1
     Route: 065

REACTIONS (2)
  - Rash pruritic [Unknown]
  - Neutropenic colitis [Recovered/Resolved]
